FAERS Safety Report 6656703-1 (Version None)
Quarter: 2010Q1

REPORT INFORMATION
  Report Type: 
  Country: None (occurrence: None)
  Receive Date: 20100329
  Receipt Date: 20100318
  Transmission Date: 20100710
  Serious: Yes (Hospitalization)
  Sender: FDA-Public Use
  Company Number: DE-GENENTECH-298910

PATIENT
  Sex: Female
  Weight: 40 kg

DRUGS (1)
  1. RITUXIMAB [Suspect]
     Indication: RHEUMATOID ARTHRITIS
     Dosage: 1000 MG, UNK
     Route: 042
     Dates: start: 20080310, end: 20091117

REACTIONS (3)
  - ANAEMIA [None]
  - HAEMATURIA [None]
  - LEUKOPENIA [None]
